FAERS Safety Report 14792724 (Version 2)
Quarter: 2019Q1

REPORT INFORMATION
  Report Type: Spontaneous
  Country: JP (occurrence: JP)
  Receive Date: 20180423
  Receipt Date: 20190220
  Transmission Date: 20190417
  Serious: Yes (Other)
  Sender: FDA-Public Use
  Company Number: JP-BAYER-2018-077745

PATIENT
  Age: 72 Year
  Sex: Female

DRUGS (17)
  1. BAYASPIRIN 100 MG [Suspect]
     Active Substance: ASPIRIN
     Indication: CARDIAC OPERATION
     Dosage: DAILY DOSE 100 MG
     Route: 048
     Dates: start: 20180318, end: 20180319
  2. METHYCOBAL [Concomitant]
     Active Substance: METHYLCOBALAMIN
  3. DEPAKENE-R [Concomitant]
     Active Substance: VALPROATE SODIUM
  4. ACTOS [Concomitant]
     Active Substance: PIOGLITAZONE HYDROCHLORIDE
  5. MIGLITOL. [Concomitant]
     Active Substance: MIGLITOL
  6. POLYFUL [Concomitant]
     Active Substance: CALCIUM POLYCARBOPHIL
  7. CLARITIN [Concomitant]
     Active Substance: LORATADINE
  8. THYRADIN S [Concomitant]
     Active Substance: LEVOTHYROXINE SODIUM
  9. CLOPIDOGREL [Suspect]
     Active Substance: CLOPIDOGREL BISULFATE
     Indication: CARDIAC OPERATION
     Dosage: DAILY DOSE 75 MG
     Route: 048
     Dates: start: 20180318, end: 20180319
  10. NO DRUG NAME [Concomitant]
  11. MICARDIS [Concomitant]
     Active Substance: TELMISARTAN
  12. TRAZENTA [Concomitant]
     Active Substance: LINAGLIPTIN
  13. BUSCOPAN [Concomitant]
     Active Substance: BUTYLSCOPOLAMINE BROMIDE
  14. ADALAT-L 10 MG [Concomitant]
  15. BAYASPIRIN 100 MG [Suspect]
     Active Substance: ASPIRIN
     Indication: CARDIAC OPERATION
     Dosage: UNK
     Route: 048
     Dates: start: 201803
  16. CLOPIDOGREL [Suspect]
     Active Substance: CLOPIDOGREL BISULFATE
     Indication: CARDIAC OPERATION
     Dosage: UNK
     Route: 048
     Dates: start: 20180411
  17. TRAMAL [Concomitant]
     Active Substance: TRAMADOL

REACTIONS (4)
  - Duodenal ulcer [Unknown]
  - Gastric ulcer [Unknown]
  - Abdominal pain [Unknown]
  - Intentional product use issue [None]

NARRATIVE: CASE EVENT DATE: 20180319
